FAERS Safety Report 8305421-2 (Version None)
Quarter: 2012Q2

REPORT INFORMATION
  Report Type: 
  Country: None (occurrence: None)
  Receive Date: 20120423
  Receipt Date: 20120413
  Transmission Date: 20120825
  Serious: Yes (Hospitalization)
  Sender: FDA-Public Use
  Company Number: PHEH2012US008102

PATIENT
  Sex: Female

DRUGS (2)
  1. PREDNISONE [Suspect]
  2. MYFORTIC [Suspect]
     Dosage: 360 MG, UNK

REACTIONS (4)
  - TREMOR [None]
  - DYSPHONIA [None]
  - HEPATIC FAILURE [None]
  - GENERAL PHYSICAL CONDITION ABNORMAL [None]
